FAERS Safety Report 18997298 (Version 3)
Quarter: 2021Q3

REPORT INFORMATION
  Report Type: Report from Study
  Country: PL (occurrence: PL)
  Receive Date: 20210311
  Receipt Date: 20210920
  Transmission Date: 20211014
  Serious: Yes (Death, Hospitalization, Other)
  Sender: FDA-Public Use
  Company Number: PL-BRISTOL-MYERS SQUIBB COMPANY-BMS-2021-021641

PATIENT
  Age: 67 Year
  Sex: Male
  Weight: 45 kg

DRUGS (12)
  1. CISPLATIN. [Suspect]
     Active Substance: CISPLATIN
     Dosage: 87 MILLIGRAM
     Route: 065
     Dates: start: 20201207, end: 20201207
  2. HELICID [OMEPRAZOLE] [Concomitant]
     Active Substance: OMEPRAZOLE
     Indication: PRODUCT USED FOR UNKNOWN INDICATION
     Dosage: 40 MILLIGRAM
     Route: 048
     Dates: start: 20200415
  3. CISPLATIN. [Suspect]
     Active Substance: CISPLATIN
     Indication: OESOPHAGEAL SQUAMOUS CELL CARCINOMA
     Dosage: 115 MILLIGRAM
     Route: 065
     Dates: start: 20191014, end: 20191014
  4. CHELA FERR FORTE [Concomitant]
     Indication: PRODUCT USED FOR UNKNOWN INDICATION
     Dosage: 1 ABSENT
     Route: 048
     Dates: start: 20200316
  5. FLUOROURACIL. [Suspect]
     Active Substance: FLUOROURACIL
     Indication: OESOPHAGEAL SQUAMOUS CELL CARCINOMA
     Dosage: 5760 MILLIGRAM
     Route: 065
     Dates: start: 20191014, end: 20191019
  6. INSULIN [Concomitant]
     Active Substance: INSULIN NOS
     Dosage: 12 OTHER
     Route: 042
     Dates: start: 20210209, end: 20210209
  7. FLUOROURACIL. [Suspect]
     Active Substance: FLUOROURACIL
     Dosage: 2610 MILLIGRAM
     Route: 065
     Dates: start: 20201207, end: 20201210
  8. FUROSEMIDE. [Concomitant]
     Active Substance: FUROSEMIDE
     Indication: PRODUCT USED FOR UNKNOWN INDICATION
     Dosage: 40 MILLIGRAM
     Route: 048
     Dates: start: 20210111, end: 20210208
  9. NIVOLUMAB [Suspect]
     Active Substance: NIVOLUMAB
     Indication: OESOPHAGEAL SQUAMOUS CELL CARCINOMA
     Dosage: 240 MILLIGRAM
     Route: 065
     Dates: start: 20191014, end: 20191014
  10. CHELA FERR FORTE [Concomitant]
     Dosage: 1 ABSENT
     Route: 048
     Dates: start: 20200831
  11. NIVOLUMAB [Suspect]
     Active Substance: NIVOLUMAB
     Dosage: 240 MILLIGRAM
     Route: 065
     Dates: start: 20210125, end: 20210125
  12. INSULIN [Concomitant]
     Active Substance: INSULIN NOS
     Indication: PRODUCT USED FOR UNKNOWN INDICATION
     Dosage: 6 ABSENT
     Route: 042
     Dates: start: 20210208, end: 20210208

REACTIONS (2)
  - Renal failure [Recovered/Resolved with Sequelae]
  - Malignant neoplasm progression [Fatal]

NARRATIVE: CASE EVENT DATE: 20210208
